FAERS Safety Report 6057804-1 (Version None)
Quarter: 2009Q1

REPORT INFORMATION
  Report Type: 
  Country: None (occurrence: None)
  Receive Date: 20090129
  Receipt Date: 20090116
  Transmission Date: 20090719
  Serious: Yes (Hospitalization, Other)
  Sender: FDA-Public Use
  Company Number: US-CELGENEUS-163-21880-09010818

PATIENT
  Sex: Male

DRUGS (2)
  1. CC-5013 [Suspect]
     Route: 048
     Dates: start: 20090108, end: 20090112
  2. CCI-779 [Suspect]
     Route: 051
     Dates: start: 20090108, end: 20090108

REACTIONS (4)
  - HAEMATURIA [None]
  - HYPOKALAEMIA [None]
  - HYPOPHOSPHATAEMIA [None]
  - PLATELET COUNT DECREASED [None]
